APPROVED DRUG PRODUCT: METROMIDOL
Active Ingredient: METRONIDAZOLE
Strength: 500MG
Dosage Form/Route: TABLET;ORAL
Application: A074523 | Product #002
Applicant: LABORATORIOS APLICACIONES FARMACEUTICAS SA DE CV
Approved: Oct 24, 1996 | RLD: No | RS: No | Type: DISCN